FAERS Safety Report 16292651 (Version 4)
Quarter: 2020Q1

REPORT INFORMATION
  Report Type: Report from Study
  Country: US (occurrence: US)
  Receive Date: 20190509
  Receipt Date: 20200330
  Transmission Date: 20200409
  Serious: Yes (Hospitalization)
  Sender: FDA-Public Use
  Company Number: US-ACTELION-A-NJ2018-179595

PATIENT
  Age: 52 Year
  Sex: Male

DRUGS (1)
  1. VELETRI [Suspect]
     Active Substance: EPOPROSTENOL
     Indication: PULMONARY ARTERIAL HYPERTENSION
     Dosage: 23.75 NG/KG, PER MIN
     Route: 042
     Dates: start: 20150611

REACTIONS (8)
  - Hospitalisation [Unknown]
  - Device dislocation [Recovered/Resolved]
  - Catheter management [Recovered/Resolved]
  - Malaise [Unknown]
  - Catheter site erythema [Unknown]
  - Catheter site cellulitis [Unknown]
  - Vascular device infection [Unknown]
  - Catheter site infection [Unknown]

NARRATIVE: CASE EVENT DATE: 20180924
